FAERS Safety Report 9889577 (Version 1)
Quarter: 2014Q1

REPORT INFORMATION
  Report Type: Spontaneous
  Country: IL (occurrence: IL)
  Receive Date: 20140211
  Receipt Date: 20140211
  Transmission Date: 20141002
  Serious: Yes (Hospitalization)
  Sender: FDA-Public Use
  Company Number: US-ASTRAZENECA-2014SE09195

PATIENT
  Age: 202 Day
  Sex: Female

DRUGS (1)
  1. SYNAGIS [Suspect]
     Indication: ANTIVIRAL PROPHYLAXIS
     Route: 030
     Dates: start: 20140108, end: 20140108

REACTIONS (4)
  - Pneumonia [Unknown]
  - Respiratory disorder [Unknown]
  - Respiratory syncytial virus test positive [Unknown]
  - Pyrexia [Unknown]
